FAERS Safety Report 15282337 (Version 5)
Quarter: 2018Q4

REPORT INFORMATION
  Report Type: Report from Study
  Country: US (occurrence: US)
  Receive Date: 20180816
  Receipt Date: 20181025
  Transmission Date: 20190204
  Serious: Yes (Other)
  Sender: FDA-Public Use
  Company Number: US-ROCHE-2165773

PATIENT
  Age: 34 Year
  Sex: Female
  Weight: 90.8 kg

DRUGS (6)
  1. LINZESS [Concomitant]
     Active Substance: LINACLOTIDE
     Indication: CONSTIPATION
  2. OCREVUS [Suspect]
     Active Substance: OCRELIZUMAB
     Route: 065
     Dates: start: 20180116
  3. OCREVUS [Suspect]
     Active Substance: OCRELIZUMAB
     Indication: RELAPSING-REMITTING MULTIPLE SCLEROSIS
     Route: 065
     Dates: start: 201801
  4. IMITREX [Concomitant]
     Active Substance: SUMATRIPTAN SUCCINATE
     Indication: MIGRAINE
  5. METFORMIN [Concomitant]
     Active Substance: METFORMIN HYDROCHLORIDE
     Indication: POLYCYSTIC OVARIES
     Route: 065
  6. PROVIGIL [Concomitant]
     Active Substance: MODAFINIL
     Indication: FATIGUE

REACTIONS (2)
  - Vulvovaginal mycotic infection [Not Recovered/Not Resolved]
  - Oral candidiasis [Not Recovered/Not Resolved]

NARRATIVE: CASE EVENT DATE: 201801
